FAERS Safety Report 9927392 (Version 2)
Quarter: 2014Q1

REPORT INFORMATION
  Report Type: Spontaneous
  Country: CG (occurrence: CG)
  Receive Date: 20140226
  Receipt Date: 20140226
  Transmission Date: 20141002
  Serious: Yes (Other)
  Sender: FDA-Public Use
  Company Number: CG-B.I. PHARMACEUTICALS,INC./RIDGEFIELD-2014-BI-06845GD

PATIENT
  Age: 40 Year
  Sex: Female

DRUGS (3)
  1. NEVIRAPINE [Suspect]
     Indication: HIV INFECTION
     Route: 065
     Dates: start: 20110121, end: 20110214
  2. TENOFOVIR [Suspect]
     Indication: HIV INFECTION
     Route: 065
     Dates: start: 20110121, end: 20110214
  3. EMTRICITABINE [Suspect]
     Indication: HIV INFECTION
     Route: 065
     Dates: start: 20110121, end: 20110214

REACTIONS (5)
  - Drug reaction with eosinophilia and systemic symptoms [Recovered/Resolved]
  - Conjunctival hyperaemia [Recovered/Resolved]
  - Face oedema [Recovered/Resolved]
  - Lymphadenopathy [Recovered/Resolved]
  - Hepatomegaly [Recovered/Resolved]
